FAERS Safety Report 5165362-9 (Version None)
Quarter: 2006Q4

REPORT INFORMATION
  Report Type: 
  Country: None (occurrence: None)
  Receive Date: 20061206
  Receipt Date: 20060921
  Transmission Date: 20070319
  Serious: Yes (Hospitalization)
  Sender: FDA-Public Use
  Company Number: FR-AVENTIS-200613269FR

PATIENT
  Age: 63 Year
  Sex: Male
  Weight: 63 kg

DRUGS (3)
  1. TAXOTERE [Suspect]
     Indication: ADENOCARCINOMA
     Route: 042
     Dates: start: 20060418, end: 20060719
  2. CISPLATIN [Suspect]
     Indication: ADENOCARCINOMA
     Route: 042
     Dates: start: 20060418, end: 20060720
  3. RADIOTHERAPY [Suspect]
     Indication: ADENOCARCINOMA

REACTIONS (7)
  - CHOLECYSTITIS [None]
  - DILATATION INTRAHEPATIC DUCT ACQUIRED [None]
  - DYSPHAGIA [None]
  - HAEMANGIOMA [None]
  - HEPATIC CYST [None]
  - JAUNDICE [None]
  - PERITONEAL EFFUSION [None]
